FAERS Safety Report 8048670-3 (Version None)
Quarter: 2012Q1

REPORT INFORMATION
  Report Type: 
  Country: None (occurrence: None)
  Receive Date: 20120117
  Receipt Date: 20120110
  Transmission Date: 20120608
  Serious: No
  Sender: FDA-Public Use
  Company Number: US-B.I. PHARMACEUTICALS,INC./RIDGEFIELD-2012-BP-00671BP

PATIENT
  Sex: Male

DRUGS (1)
  1. ATROVENT HFA [Suspect]
     Dosage: 68 MCG
     Route: 055
     Dates: start: 20110201

REACTIONS (4)
  - ORAL PAIN [None]
  - THROAT IRRITATION [None]
  - OROPHARYNGEAL PAIN [None]
  - ORAL DISCOMFORT [None]
